FAERS Safety Report 15962406 (Version 1)
Quarter: 2019Q1

REPORT INFORMATION
  Report Type: Spontaneous
  Country: US (occurrence: US)
  Receive Date: 20190214
  Receipt Date: 20190214
  Transmission Date: 20190417
  Serious: Yes (Hospitalization)
  Sender: FDA-Public Use
  Company Number: US-BAUSCH-BL-2019-004059

PATIENT
  Sex: Female
  Weight: 58.11 kg

DRUGS (3)
  1. RELISTOR [Suspect]
     Active Substance: METHYLNALTREXONE BROMIDE
     Indication: IMPAIRED GASTRIC EMPTYING
     Dosage: WHILE PATIENT WAS IN THE HOSPITAL
     Route: 065
  2. DILAUDID [Concomitant]
     Active Substance: HYDROMORPHONE HYDROCHLORIDE
     Indication: PRODUCT USED FOR UNKNOWN INDICATION
  3. RELISTOR [Suspect]
     Active Substance: METHYLNALTREXONE BROMIDE
     Indication: CONSTIPATION
     Dosage: USED TWO SAMPLES
     Route: 065
     Dates: start: 2017, end: 2017

REACTIONS (7)
  - Inability to afford medication [Not Recovered/Not Resolved]
  - Cystitis [Unknown]
  - Kidney infection [Unknown]
  - Therapy cessation [Not Recovered/Not Resolved]
  - Blood potassium decreased [Unknown]
  - Ill-defined disorder [Unknown]
  - Hospitalisation [Unknown]

NARRATIVE: CASE EVENT DATE: 2017
